FAERS Safety Report 19053449 (Version 3)
Quarter: 2021Q2

REPORT INFORMATION
  Report Type: Report from Study
  Country: CN (occurrence: CN)
  Receive Date: 20210324
  Receipt Date: 20210629
  Transmission Date: 20210717
  Serious: Yes (Hospitalization)
  Sender: FDA-Public Use
  Company Number: CN-ROCHE-2709996

PATIENT
  Age: 60 Year
  Sex: Male
  Weight: 63.5 kg

DRUGS (2)
  1. ATEZOLIZUMAB. [Suspect]
     Active Substance: ATEZOLIZUMAB
     Indication: MALIGNANT MELANOMA
     Dosage: MOST RECENT DOSE PRIOR TO AE/SAE ON 19/FEB/2021
     Route: 041
     Dates: start: 20201016
  2. BEVACIZUMAB. [Suspect]
     Active Substance: BEVACIZUMAB
     Indication: MALIGNANT MELANOMA
     Dosage: MOST RECENT DOSE PRIOR TO AE/SAE ON 19/FEB/2021 WAS 450 MG
     Route: 041
     Dates: start: 20201016

REACTIONS (2)
  - Post herpetic neuralgia [Recovering/Resolving]
  - Hypophysitis [Recovering/Resolving]

NARRATIVE: CASE EVENT DATE: 20201020
